FAERS Safety Report 4758549-8 (Version None)
Quarter: 2005Q3

REPORT INFORMATION
  Report Type: 
  Country: None (occurrence: None)
  Receive Date: 20050826
  Receipt Date: 20050815
  Transmission Date: 20060218
  Serious: Yes (Hospitalization)
  Sender: FDA-Public Use
  Company Number: 2005JP001490

PATIENT
  Age: 44 Year
  Sex: Male
  Weight: 47 kg

DRUGS (6)
  1. PROGRAF [Suspect]
     Indication: LIVER TRANSPLANT
     Dosage: SEE IMAGE
     Route: 041
     Dates: start: 20050222, end: 20050223
  2. PROGRAF [Suspect]
     Indication: LIVER TRANSPLANT
     Dosage: SEE IMAGE
     Route: 041
     Dates: start: 20050223
  3. CELLCEPT [Concomitant]
  4. MEDROL [Concomitant]
  5. NU LOTAN (LOSARTAN POTASSIUM) TABLET [Concomitant]
  6. GASTER [Concomitant]

REACTIONS (3)
  - DISEASE RECURRENCE [None]
  - PAIN IN EXTREMITY [None]
  - THROMBOPHLEBITIS SUPERFICIAL [None]
